FAERS Safety Report 9681567 (Version 1)
Quarter: 2013Q4

REPORT INFORMATION
  Report Type: Spontaneous
  Country: US (occurrence: US)
  Receive Date: 20131111
  Receipt Date: 20131111
  Transmission Date: 20140711
  Serious: No
  Sender: FDA-Public Use
  Company Number: US-ENDO PHARMACEUTICALS INC.-CLON20130002

PATIENT
  Sex: Female

DRUGS (3)
  1. CLONIDINE HCL TABLETS 0.1MG [Suspect]
     Indication: HYPERTENSION
     Route: 048
  2. CLONIDINE HCL TABLETS 0.1MG [Suspect]
     Indication: HEART RATE INCREASED
     Route: 048
  3. ALPRAZOLAM [Concomitant]
     Indication: PANIC ATTACK
     Dosage: UNKNOWN
     Route: 048

REACTIONS (1)
  - Drug ineffective [Not Recovered/Not Resolved]
